FAERS Safety Report 18734881 (Version 1)
Quarter: 2021Q1

REPORT INFORMATION
  Report Type: Spontaneous
  Country: US (occurrence: US)
  Receive Date: 20210111
  Receipt Date: 20210111
  Transmission Date: 20210419
  Serious: Yes (Other)
  Sender: FDA-Public Use
  Company Number: None

PATIENT
  Age: 50 Year
  Sex: Male
  Weight: 106.59 kg

DRUGS (1)
  1. OXYCODONE HYDROCHLORIDE 30MG [Suspect]
     Active Substance: OXYCODONE HYDROCHLORIDE

REACTIONS (6)
  - Manufacturing issue [None]
  - Product substitution issue [None]
  - Pruritus [None]
  - Rash [None]
  - Product quality issue [None]
  - Scar [None]
